FAERS Safety Report 9781569 (Version 1)
Quarter: 2013Q4

REPORT INFORMATION
  Report Type: Spontaneous
  Country: US (occurrence: None)
  Receive Date: 20131223
  Receipt Date: 20131223
  Transmission Date: 20140711
  Serious: No
  Sender: FDA-Public Use
  Company Number: None

PATIENT
  Age: 73 Year
  Sex: Male
  Weight: 114.1 kg

DRUGS (1)
  1. DORZOLAMIDE/TIMOLOL [Suspect]
     Indication: GLAUCOMA
     Dosage: 1 DROPS, BID, EYE
     Route: 031
     Dates: start: 20131122, end: 20131204

REACTIONS (2)
  - Eye oedema [None]
  - Ocular hyperaemia [None]
